FAERS Safety Report 7988769-0 (Version None)
Quarter: 2011Q4

REPORT INFORMATION
  Report Type: 
  Country: None (occurrence: None)
  Receive Date: 20111219
  Receipt Date: 20111209
  Transmission Date: 20120403
  Serious: Yes (Hospitalization)
  Sender: FDA-Public Use
  Company Number: US-BIOGENIDEC-2011BI042349

PATIENT
  Age: 53 Year
  Sex: Male

DRUGS (10)
  1. RANITIDINE [Concomitant]
  2. CLOZAPINE [Concomitant]
     Indication: PSYCHOTIC DISORDER
     Dates: end: 20110701
  3. DSS [Concomitant]
  4. UNSPECIFIED VITAMINS [Concomitant]
  5. ASCORBIC ACID [Concomitant]
  6. FERROUS SULFATE TAB [Concomitant]
  7. AVONEX [Suspect]
     Indication: MULTIPLE SCLEROSIS
     Route: 030
     Dates: start: 20100209
  8. CLOZAPINE [Concomitant]
     Dates: end: 20110701
  9. LORATADINE [Concomitant]
  10. PRAVASTATIN [Concomitant]

REACTIONS (2)
  - DRUG WITHDRAWAL SYNDROME [None]
  - MAJOR DEPRESSION [None]
